FAERS Safety Report 5697918-9 (Version None)
Quarter: 2008Q2

REPORT INFORMATION
  Report Type: 
  Country: None (occurrence: None)
  Receive Date: 20080408
  Receipt Date: 20080331
  Transmission Date: 20081010
  Serious: Yes (Life-Threatening)
  Sender: FDA-Public Use
  Company Number: GB-ROCHE-556107

PATIENT
  Age: 55 Year
  Sex: Male
  Weight: 55 kg

DRUGS (8)
  1. INTERFERON ALFA [Suspect]
     Indication: HEPATITIS C
     Route: 065
     Dates: start: 20070303, end: 20080115
  2. TRIBAVIRIN [Suspect]
     Indication: HEPATITIS C
     Route: 065
     Dates: start: 20070303, end: 20080115
  3. CETIRIZINE HCL [Concomitant]
     Dosage: TAKEN DAILY
  4. CO-CODAMOL [Concomitant]
  5. CO-CODAMOL [Concomitant]
  6. IBUPROFEN [Concomitant]
  7. IMODIUM [Concomitant]
  8. RANITIDINE HYDROCHLORIDE [Concomitant]

REACTIONS (1)
  - ACQUIRED HAEMOPHILIA [None]
